FAERS Safety Report 25400430 (Version 1)
Quarter: 2025Q2

REPORT INFORMATION
  Report Type: Spontaneous
  Country: US (occurrence: None)
  Receive Date: 20250603
  Receipt Date: 20250603
  Transmission Date: 20250717
  Serious: Yes (Hospitalization)
  Sender: FDA-CTU
  Company Number: None

PATIENT
  Age: 45 Year
  Sex: Male
  Weight: 77 kg

DRUGS (2)
  1. INDOMETHACIN [Suspect]
     Active Substance: INDOMETHACIN
     Indication: Pericarditis
     Dosage: FREQUENCY : DAILY;?
     Route: 048
     Dates: start: 20250523
  2. COLCHICINE [Suspect]
     Active Substance: COLCHICINE

REACTIONS (1)
  - Swelling face [None]

NARRATIVE: CASE EVENT DATE: 20250524
